FAERS Safety Report 16780797 (Version 2)
Quarter: 2019Q3

REPORT INFORMATION
  Report Type: Spontaneous
  Country: DE (occurrence: DE)
  Receive Date: 20190906
  Receipt Date: 20190924
  Transmission Date: 20191005
  Serious: Yes (Hospitalization, Disabling, Other)
  Sender: FDA-Public Use
  Company Number: DE-MYLANLABS-2019M1083224

PATIENT
  Age: 39 Year
  Sex: Female

DRUGS (4)
  1. DEXAMETHASONE. [Suspect]
     Active Substance: DEXAMETHASONE
     Indication: MYOSCLEROSIS
     Dosage: INJECTION
  2. METAMIZOLE SODIUM [Suspect]
     Active Substance: METAMIZOLE SODIUM
     Indication: MYOSCLEROSIS
     Dosage: INJECTION
  3. MEPIVACAINE [Suspect]
     Active Substance: MEPIVACAINE HYDROCHLORIDE
     Indication: MYOSCLEROSIS
     Dosage: INJECTION
  4. TRAMADOL. [Suspect]
     Active Substance: TRAMADOL
     Indication: MYOSCLEROSIS
     Dosage: INJECTION

REACTIONS (14)
  - VIIIth nerve injury [Not Recovered/Not Resolved]
  - Syncope [Recovered/Resolved]
  - Tinnitus [Recovered/Resolved]
  - Wrong technique in product usage process [Not Recovered/Not Resolved]
  - Disturbance in attention [Recovered/Resolved]
  - Intentional product misuse [Unknown]
  - Loss of consciousness [Recovered/Resolved with Sequelae]
  - Hyperaesthesia [Not Recovered/Not Resolved]
  - Deafness neurosensory [Not Recovered/Not Resolved]
  - Quadriparesis [Recovered/Resolved]
  - Deafness bilateral [Not Recovered/Not Resolved]
  - Ataxia [Recovering/Resolving]
  - Hypoacusis [Not Recovered/Not Resolved]
  - Quadriplegia [Recovered/Resolved with Sequelae]
